FAERS Safety Report 5936235-6 (Version None)
Quarter: 2008Q4

REPORT INFORMATION
  Report Type: 
  Country: None (occurrence: None)
  Receive Date: 20081030
  Receipt Date: 20080324
  Transmission Date: 20090506
  Serious: No
  Sender: FDA-Public Use
  Company Number: A0706099A

PATIENT
  Age: 59 Year
  Sex: Male

DRUGS (4)
  1. SEREVENT [Suspect]
     Indication: ASTHMA
     Dosage: 50MCG TWICE PER DAY
     Route: 055
     Dates: start: 20060501
  2. PULMICORT-100 [Concomitant]
  3. SINGULAIR [Concomitant]
  4. ALBUTEROL [Concomitant]

REACTIONS (4)
  - BURNING SENSATION [None]
  - PRODUCT QUALITY ISSUE [None]
  - RESPIRATORY TRACT IRRITATION [None]
  - THROAT IRRITATION [None]
